FAERS Safety Report 7716250-2 (Version None)
Quarter: 2011Q3

REPORT INFORMATION
  Report Type: 
  Country: None (occurrence: None)
  Receive Date: 20110812
  Receipt Date: 20110509
  Transmission Date: 20111222
  Serious: Yes (Other)
  Sender: FDA-Public Use
  Company Number: 2011SP021078

PATIENT
  Age: 58 Year
  Sex: Male

DRUGS (2)
  1. REMERON [Suspect]
     Indication: DEPRESSION
     Dosage: 1 DF;PO
     Route: 048
     Dates: start: 20110425, end: 20110425
  2. XANAX [Concomitant]

REACTIONS (2)
  - CONVULSION [None]
  - DRUG DIVERSION [None]
